FAERS Safety Report 19972363 (Version 2)
Quarter: 2023Q2

REPORT INFORMATION
  Report Type: Spontaneous
  Country: US (occurrence: US)
  Receive Date: 20211019
  Receipt Date: 20230601
  Transmission Date: 20230721
  Serious: Yes (Life-Threatening, Other)
  Sender: FDA-Public Use
  Company Number: US-EXELA PHARMA SCIENCES, LLC-2021EXL00029

PATIENT
  Age: 62 Year
  Sex: Male
  Weight: 132.7 kg

DRUGS (12)
  1. TRANEXAMIC ACID [Suspect]
     Active Substance: TRANEXAMIC ACID
     Indication: Orthopaedic procedure
     Dosage: 1 G, TWICE (PRE AND POST SURGERY)
     Dates: start: 20210913, end: 20210913
  2. ALLOPURINOL [Concomitant]
     Active Substance: ALLOPURINOL
  3. ASPIRIN [Concomitant]
     Active Substance: ASPIRIN
  4. XTANDI [Concomitant]
     Active Substance: ENZALUTAMIDE
  5. NEXIUM [Concomitant]
     Active Substance: ESOMEPRAZOLE MAGNESIUM
  6. GLYBURIDE [Concomitant]
     Active Substance: GLYBURIDE
  7. METFORMIN [Concomitant]
     Active Substance: METFORMIN HYDROCHLORIDE
  8. HYDROCHLOROTHIAZIDE\LOSARTAN [Concomitant]
     Active Substance: HYDROCHLOROTHIAZIDE\LOSARTAN
  9. LUPRON [Concomitant]
     Active Substance: LEUPROLIDE ACETATE
  10. MOBIC [Concomitant]
     Active Substance: MELOXICAM
  11. VITAMINS [Concomitant]
     Active Substance: VITAMINS
  12. PRAVASTATIN [Concomitant]
     Active Substance: PRAVASTATIN

REACTIONS (2)
  - Anaphylactic reaction [Recovered/Resolved]
  - Off label use [Recovered/Resolved]

NARRATIVE: CASE EVENT DATE: 20210913
